FAERS Safety Report 10271042 (Version 1)
Quarter: 2014Q3

REPORT INFORMATION
  Report Type: Spontaneous
  Country: US (occurrence: US)
  Receive Date: 20140701
  Receipt Date: 20140701
  Transmission Date: 20150326
  Serious: Yes (Other)
  Sender: FDA-Public Use
  Company Number: US-ASTRAZENECA-2014SE46239

PATIENT
  Age: 713 Month
  Sex: Male
  Weight: 32.2 kg

DRUGS (5)
  1. OMEPRAZOLE. [Suspect]
     Active Substance: OMEPRAZOLE
     Indication: ABDOMINAL DISCOMFORT
     Route: 048
     Dates: start: 201306
  2. LEVOTHYROXINE [Concomitant]
     Active Substance: LEVOTHYROXINE
     Indication: THYROID DISORDER
  3. ISOSORBIDE [Concomitant]
     Active Substance: ISOSORBIDE
     Dosage: TWO 30 MG TABLETS IN THE MORNING AND ONE 30 MG TABLET AT NIGHT
  4. ASPIRIN. [Concomitant]
     Active Substance: ASPIRIN
     Dates: start: 2001
  5. BRILINTA [Suspect]
     Active Substance: TICAGRELOR
     Indication: STENT PLACEMENT
     Route: 048
     Dates: start: 201405

REACTIONS (6)
  - Rectal haemorrhage [Unknown]
  - Wound haemorrhage [Recovered/Resolved]
  - Off label use [Unknown]
  - Coronary artery disease [Unknown]
  - Chest pain [Not Recovered/Not Resolved]
  - Pain in extremity [Not Recovered/Not Resolved]

NARRATIVE: CASE EVENT DATE: 201405
